FAERS Safety Report 10235508 (Version 2)
Quarter: 2014Q2

REPORT INFORMATION
  Report Type: Spontaneous
  Country: GB (occurrence: GB)
  Receive Date: 20140613
  Receipt Date: 20140616
  Transmission Date: 20141212
  Serious: Yes (Death)
  Sender: FDA-Public Use
  Company Number: GB-ROCHE-1413436

PATIENT
  Age: 49 Year
  Sex: Male
  Weight: 90 kg

DRUGS (3)
  1. RIBAVIRIN [Suspect]
     Indication: HEPATITIS C
     Dosage: 400 MG A.M. - 600 MG P.M.
     Route: 065
     Dates: start: 20140303
  2. INCIVO [Suspect]
     Indication: HEPATITIS C
     Route: 048
     Dates: start: 20140302
  3. VIRAFERONPEG [Suspect]
     Indication: HEPATITIS C
     Route: 065
     Dates: start: 20140302

REACTIONS (3)
  - Pneumonia [Fatal]
  - Arrhythmia [Fatal]
  - Myocardial fibrosis [Fatal]
